FAERS Safety Report 6381393-5 (Version None)
Quarter: 2009Q3

REPORT INFORMATION
  Report Type: 
  Country: None (occurrence: None)
  Receive Date: 20090924
  Receipt Date: 20090917
  Transmission Date: 20100115
  Serious: Yes (Life-Threatening, Hospitalization, Other)
  Sender: FDA-Public Use
  Company Number: THYR-1000111

PATIENT
  Age: 61 Year
  Sex: Female

DRUGS (3)
  1. THYROGEN [Suspect]
     Indication: SCAN THYROID GLAND
     Dosage: 0.9 MG, QD, INTRAMUSCULAR
     Route: 030
     Dates: start: 20080405, end: 20080406
  2. PREVISCAN (FLUINDIONE) TABLET [Concomitant]
  3. LEVOTHYROXINE SODIUM [Concomitant]

REACTIONS (2)
  - DEEP VEIN THROMBOSIS [None]
  - THROMBOPHLEBITIS [None]
